FAERS Safety Report 6803213-4 (Version None)
Quarter: 2010Q2

REPORT INFORMATION
  Report Type: 
  Country: None (occurrence: None)
  Receive Date: 20100628
  Receipt Date: 20100615
  Transmission Date: 20101027
  Serious: Yes (Hospitalization)
  Sender: FDA-Public Use
  Company Number: B0657103A

PATIENT
  Sex: Female
  Weight: 60 kg

DRUGS (7)
  1. ZOPHREN [Suspect]
     Indication: VOMITING
     Dosage: 8MGM2 PER DAY
     Route: 048
     Dates: start: 20090219
  2. AVASTIN [Suspect]
     Indication: ADENOCARCINOMA
     Dosage: 300MGM2 PER DAY
     Route: 042
     Dates: start: 20090219, end: 20090514
  3. CAMPTOSAR [Suspect]
     Indication: ADENOCARCINOMA
     Dosage: 290MGM2 PER DAY
     Route: 042
     Dates: start: 20090219
  4. FLUOROURACIL [Suspect]
     Indication: ADENOCARCINOMA
     Dosage: 4500MGM2 PER DAY
     Route: 042
     Dates: start: 20090219
  5. LEUCOVORIN CALCIUM [Suspect]
     Indication: ADENOCARCINOMA
     Dosage: 520MGM2 PER DAY
     Route: 042
     Dates: start: 20090219
  6. SOLU-MEDROL [Suspect]
     Indication: ADENOCARCINOMA
     Dosage: 60MGM2 PER DAY
     Route: 042
     Dates: start: 20090219
  7. PROCTOLOG [Concomitant]

REACTIONS (3)
  - DIARRHOEA [None]
  - EPISTAXIS [None]
  - PALMAR-PLANTAR ERYTHRODYSAESTHESIA SYNDROME [None]
